FAERS Safety Report 8000656-0 (Version None)
Quarter: 2011Q4

REPORT INFORMATION
  Report Type: 
  Country: None (occurrence: None)
  Receive Date: 20111216
  Receipt Date: 20111206
  Transmission Date: 20120403
  Serious: Yes (Other)
  Sender: FDA-Public Use
  Company Number: B0769202A

PATIENT
  Age: 15 Year
  Sex: Female

DRUGS (2)
  1. CEFTAZIDIME SODIUM [Suspect]
     Indication: INFECTIOUS PERITONITIS
     Dosage: INTRAVENOUS
     Route: 042
  2. CEFTAZIDIME SODIUM [Suspect]
     Indication: INFECTIOUS PERITONITIS
     Dosage: INTRAPERITONEAL
     Route: 033

REACTIONS (4)
  - VOMITING [None]
  - STATUS EPILEPTICUS [None]
  - CONFUSIONAL STATE [None]
  - HEADACHE [None]
